FAERS Safety Report 7965534-1 (Version None)
Quarter: 2011Q4

REPORT INFORMATION
  Report Type: 
  Country: None (occurrence: None)
  Receive Date: 20111208
  Receipt Date: 20111130
  Transmission Date: 20120403
  Serious: Yes (Hospitalization)
  Sender: FDA-Public Use
  Company Number: US-JNJFOC-20111200602

PATIENT
  Age: 20 Year
  Sex: Female
  Weight: 50.8 kg

DRUGS (1)
  1. INVEGA SUSTENNA [Suspect]
     Indication: BIPOLAR DISORDER
     Route: 030
     Dates: start: 20111122, end: 20111122

REACTIONS (2)
  - HYPERSENSITIVITY [None]
  - EXTRAPYRAMIDAL DISORDER [None]
